FAERS Safety Report 12266710 (Version 2)
Quarter: 2017Q1

REPORT INFORMATION
  Report Type: Report from Study
  Country: US (occurrence: US)
  Receive Date: 20160414
  Receipt Date: 20170201
  Transmission Date: 20170428
  Serious: Yes (Other)
  Sender: FDA-Public Use
  Company Number: US-AMGEN-USASL2016045611

PATIENT
  Age: 62 Year
  Sex: Female

DRUGS (1)
  1. REPATHA [Suspect]
     Active Substance: EVOLOCUMAB
     Indication: BLOOD GLUCOSE ABNORMAL
     Dosage: 140 MG, UNK
     Route: 065

REACTIONS (2)
  - Deafness unilateral [Recovering/Resolving]
  - Off label use [Unknown]
